FAERS Safety Report 5833732-9 (Version None)
Quarter: 2008Q3

REPORT INFORMATION
  Report Type: 
  Country: None (occurrence: None)
  Receive Date: 20080805
  Receipt Date: 20080728
  Transmission Date: 20090109
  Serious: Yes (Death, Other)
  Sender: FDA-Public Use
  Company Number: US-ASTRAZENECA-2006UW23614

PATIENT
  Age: 505 Month
  Sex: Male
  Weight: 113.4 kg

DRUGS (5)
  1. SEROQUEL [Suspect]
     Indication: ANXIETY
     Route: 048
     Dates: start: 20030101, end: 20051209
  2. SEROQUEL [Suspect]
     Indication: SOCIAL PHOBIA
     Route: 048
     Dates: start: 20030101, end: 20051209
  3. SEROQUEL [Suspect]
     Indication: DYSTHYMIC DISORDER
     Route: 048
     Dates: start: 20030101, end: 20051209
  4. SEROQUEL [Suspect]
     Indication: ADJUSTMENT DISORDER
     Route: 048
     Dates: start: 20030101, end: 20051209
  5. SEROQUEL [Suspect]
     Indication: DEPRESSION
     Route: 048
     Dates: start: 20030101, end: 20051209

REACTIONS (2)
  - DEATH [None]
  - PANCREATITIS [None]
